FAERS Safety Report 24356383 (Version 1)
Quarter: 2024Q3

REPORT INFORMATION
  Report Type: Spontaneous
  Country: IN (occurrence: IN)
  Receive Date: 20240924
  Receipt Date: 20240924
  Transmission Date: 20241017
  Serious: Yes (Death)
  Sender: ROCHE
  Company Number: IN-ROCHE-10000088728

PATIENT
  Age: 48 Year
  Sex: Male

DRUGS (1)
  1. TECENTRIQ [Suspect]
     Active Substance: ATEZOLIZUMAB
     Indication: Gastrooesophageal cancer
     Route: 042
     Dates: start: 20240805

REACTIONS (1)
  - Death [Fatal]

NARRATIVE: CASE EVENT DATE: 20240814
